FAERS Safety Report 11139400 (Version 1)
Quarter: 2015Q2

REPORT INFORMATION
  Report Type: Spontaneous
  Country: CA (occurrence: CA)
  Receive Date: 20150527
  Receipt Date: 20150527
  Transmission Date: 20150821
  Serious: Yes (Disabling)
  Sender: FDA-Public Use
  Company Number: CA-TEVA-565094ACC

PATIENT
  Age: 66 Year
  Sex: Male
  Weight: 98.97 kg

DRUGS (8)
  1. AMLODIPINE [Concomitant]
     Active Substance: AMLODIPINE BESYLATE
     Dosage: UNKNOWN FORM STRENGTH
     Route: 065
  2. CALCITE D [Concomitant]
     Active Substance: CALCIUM CARBONATE
     Dosage: UNKNOWN FORM STRENGTH
     Route: 065
  3. EURO FOLIC 5MG [Concomitant]
     Dosage: UNKNOWN FORM STRENGTH
     Route: 065
  4. PRAVASTATIN SODIUM. [Concomitant]
     Active Substance: PRAVASTATIN SODIUM
     Dosage: UNKNOWN FORM STRENGTH
     Route: 065
  5. ZYLOPRIM [Concomitant]
     Active Substance: ALLOPURINOL
     Dosage: UNKNOWN FORM STRENGTH
     Route: 065
  6. PRAMIPEXOLE [Suspect]
     Active Substance: PRAMIPEXOLE
     Indication: PAIN IN EXTREMITY
     Route: 048
  7. PLAVIX [Concomitant]
     Active Substance: CLOPIDOGREL BISULFATE
     Dosage: UNKNOWN FORM STRENGTH
     Route: 065
  8. PANTOPRAZOLE [Concomitant]
     Active Substance: PANTOPRAZOLE SODIUM
     Dosage: UNKNOWN FORM STRENGTH
     Route: 065

REACTIONS (3)
  - Pain in extremity [Recovered/Resolved]
  - Joint range of motion decreased [Recovered/Resolved]
  - Musculoskeletal stiffness [Recovered/Resolved]
